FAERS Safety Report 10213806 (Version 1)
Quarter: 2014Q2

REPORT INFORMATION
  Report Type: Spontaneous
  Country: US (occurrence: US)
  Receive Date: 20140603
  Receipt Date: 20140603
  Transmission Date: 20141212
  Serious: Yes (Hospitalization)
  Sender: FDA-Public Use
  Company Number: US-BAYER-2014-082220

PATIENT
  Age: 51 Year
  Sex: Female
  Weight: 62.59 kg

DRUGS (9)
  1. YAZ [Suspect]
  2. GIANVI [Suspect]
  3. LEXAPRO [Concomitant]
     Dosage: 10 MG, DAILY
     Route: 048
  4. AMBIEN [Concomitant]
     Dosage: 12.5 MG TAB DAILY HS
     Route: 048
  5. XANAX [Concomitant]
     Dosage: 0.5 MG 3 TIMES A DAY PRN
     Route: 048
  6. GABAPENTIN [Concomitant]
     Dosage: 400 MG, HS
  7. PREDNISONE [Concomitant]
  8. CLINDAMYCIN [Concomitant]
  9. OXYCODONE [Concomitant]

REACTIONS (1)
  - Pulmonary embolism [None]
